FAERS Safety Report 21352841 (Version 12)
Quarter: 2023Q1

REPORT INFORMATION
  Report Type: Report from Study
  Country: US (occurrence: US)
  Receive Date: 20220920
  Receipt Date: 20230330
  Transmission Date: 20230417
  Serious: Yes (Other)
  Sender: FDA-Public Use
  Company Number: US-NOVARTISTESTPH-NVSC2022US212091

PATIENT
  Age: 68 Year
  Sex: Female
  Weight: 95.3 kg

DRUGS (20)
  1. KISQALI [Suspect]
     Active Substance: RIBOCICLIB
     Indication: Breast cancer
     Dosage: 600 MG, QD
     Route: 048
     Dates: start: 20220909, end: 20220926
  2. KISQALI [Suspect]
     Active Substance: RIBOCICLIB
     Indication: Metastases to bone
     Dosage: 400 MG, QD
     Route: 048
     Dates: start: 20221003, end: 20221102
  3. KISQALI [Suspect]
     Active Substance: RIBOCICLIB
     Indication: Breast cancer metastatic
     Dosage: 200 MG, QD
     Route: 048
     Dates: start: 20221212
  4. KISQALI [Suspect]
     Active Substance: RIBOCICLIB
     Dosage: 200 MG, QD
     Route: 048
  5. KISQALI [Suspect]
     Active Substance: RIBOCICLIB
     Dosage: 200 MG, QD (TAKE 1 TABLET (200 MG) BY MOUTH 1 TIME PER DAY FOR 21 DAYS. TAKE WITH OR WITHOUT FOOD FO
     Route: 048
     Dates: start: 20230315
  6. ZOMETA [Concomitant]
     Active Substance: ZOLEDRONIC ACID
     Indication: Product used for unknown indication
     Dosage: UNK (CONTINUE WITH ZOMETA EVERY 3-MONTHS WITH NEXT DOSE THEN ON APRIL 26)
     Route: 065
     Dates: start: 202209
  7. DEXAMETHASONE [Concomitant]
     Active Substance: DEXAMETHASONE
     Indication: Product used for unknown indication
     Dosage: UNK
     Route: 065
  8. OSCAL D [Concomitant]
     Active Substance: CALCIUM CARBONATE\CHOLECALCIFEROL
     Indication: Product used for unknown indication
     Dosage: 1 DOSAGE FORM, BID (TAKE 1 TABLET BY MOUTH 2 TIMES A DAY WITH MEALS)
     Route: 048
     Dates: start: 20220908
  9. TEMOVATE [Concomitant]
     Active Substance: CLOBETASOL PROPIONATE
     Indication: Product used for unknown indication
     Dosage: UNK, PRN (APPLY ONCE DAILY TO AFFECTED AREAS ON MONDAY, WEDNESDAY, AND FRIDAY AS NEEDED)
     Route: 065
     Dates: start: 20220802
  10. AROMASIN [Concomitant]
     Active Substance: EXEMESTANE
     Indication: Product used for unknown indication
     Dosage: 1 DOSAGE FORM, QD (TAKE 1 TABLET (25 MG) BY MOUTH 1 TIME A DAY WITH BREAKFAST)
     Route: 048
     Dates: start: 20220907
  11. PEPCID [Concomitant]
     Active Substance: FAMOTIDINE
     Indication: Product used for unknown indication
     Dosage: 1 DOSAGE FORM, BID (TAKE 1 TABLET (10 MG) BY MOUTH 2 TIMES A DAY)
     Route: 048
     Dates: start: 20220930, end: 20230317
  12. SYNTHROID [Concomitant]
     Active Substance: LEVOTHYROXINE SODIUM
     Indication: Product used for unknown indication
     Dosage: 1 DOSAGE FORM, QD (TAKE 1 TABLET BY MOUTH DAILY ON EMPTY STOMACH SEPARATE FROM SUPPLEMENTS)
     Route: 048
     Dates: start: 20221019
  13. PRINIVIL [Concomitant]
     Active Substance: LISINOPRIL
     Indication: Product used for unknown indication
     Dosage: 1 DOSAGE FORM, QD (TAKE 1 TABLET (10 MG) BY MOUTH 1 TIME PER DAY)
     Route: 048
     Dates: start: 20221019
  14. ZESTRIL [Concomitant]
     Active Substance: LISINOPRIL
     Indication: Product used for unknown indication
     Dosage: 1 DOSAGE FORM, QD (TAKE 1 TABLET (10 MG) BY MOUTH 1 TIME PER DAY)
     Route: 048
     Dates: start: 20221019
  15. MELATONIN [Concomitant]
     Active Substance: MELATONIN
     Indication: Product used for unknown indication
     Dosage: 1 DOSAGE FORM, QD (TAKE 5 MG BY MOUTH EVERY NIGHT AT BEDTIME)
     Route: 048
  16. TOPROL XL [Concomitant]
     Active Substance: METOPROLOL SUCCINATE
     Indication: Product used for unknown indication
     Dosage: 1 DOSAGE FORM, QD (SR TABLET (24 HR) (TAKE ONE TABLET (25 MG) BY MOUTH ONE TIME PER DAY)
     Route: 048
     Dates: start: 20221019
  17. PERCOCET [Concomitant]
     Active Substance: ACETAMINOPHEN\OXYCODONE HYDROCHLORIDE
     Indication: Pain
     Dosage: UNK (TAKE 1-2 TABLETS BY MOUTH EVERY 4 TO 6 HOURS AS NEEDED FOR SEVERE PAIN FOR UP TO 120 DOSES)
     Route: 048
     Dates: start: 20220901
  18. COMPAZINE [Concomitant]
     Active Substance: PROCHLORPERAZINE MALEATE
     Indication: Nausea
     Dosage: 1 DOSAGE FORM, QID (TAKE 1 TABLET (10 MG) BY MOUTH 4 TIMES A DAY AS NEEDED)
     Route: 048
     Dates: start: 20220908
  19. COMPAZINE [Concomitant]
     Active Substance: PROCHLORPERAZINE MALEATE
     Indication: Vomiting
  20. CRESTOR [Concomitant]
     Active Substance: ROSUVASTATIN CALCIUM
     Indication: Product used for unknown indication
     Dosage: 1 DOSAGE FORM, QOD (STOP DATE: 19 OCT 2023, TAKE 1 TABLET (5 MG) BY MOUTH EVERY OTHER DAY)
     Route: 048
     Dates: start: 20221019

REACTIONS (14)
  - Malignant neoplasm progression [Recovering/Resolving]
  - Breast cancer [Recovering/Resolving]
  - Tremor [Recovered/Resolved]
  - Feeling abnormal [Recovered/Resolved]
  - Hepatic enzyme abnormal [Recovered/Resolved]
  - Diarrhoea [Unknown]
  - Liver function test abnormal [Unknown]
  - Liver function test increased [Unknown]
  - Arthralgia [Unknown]
  - Cough [Not Recovered/Not Resolved]
  - Infection [Not Recovered/Not Resolved]
  - Hot flush [Unknown]
  - Pain [Recovered/Resolved]
  - Product use in unapproved indication [Unknown]

NARRATIVE: CASE EVENT DATE: 20220901
